FAERS Safety Report 20313097 (Version 1)
Quarter: 2022Q1

REPORT INFORMATION
  Report Type: Report from Study
  Country: FR (occurrence: FR)
  Receive Date: 20220109
  Receipt Date: 20220109
  Transmission Date: 20220423
  Serious: Yes (Other)
  Sender: FDA-Public Use
  Company Number: FR-SERVIER-S21003827

PATIENT

DRUGS (5)
  1. PEGASPARGASE [Suspect]
     Active Substance: PEGASPARGASE
     Indication: Acute lymphocytic leukaemia
     Dosage: 3050 IU, QD ON D12
     Route: 042
     Dates: start: 20210301, end: 20210301
  2. TN UNSPECIFIED [Concomitant]
     Indication: Acute lymphocytic leukaemia
     Dosage: 1.9 MG ON D8, D15, D22, AND D29
     Route: 042
     Dates: start: 20210225, end: 20210318
  3. TN UNSPECIFIED [Concomitant]
     Indication: Acute lymphocytic leukaemia
     Dosage: 37.5 MG ON D8, D15, D22, AND D29
     Route: 042
     Dates: start: 20210225, end: 20210318
  4. TN UNSPECIFIED [Concomitant]
     Indication: Acute lymphocytic leukaemia
     Dosage: 14 MG ON D1 TO D28
     Route: 048
     Dates: start: 20210225, end: 20210317
  5. TN UNSPECIFIED [Concomitant]
     Indication: Acute lymphocytic leukaemia
     Dosage: 12 MG ON D13 AND D24
     Route: 037
     Dates: start: 20210302, end: 20210315

REACTIONS (1)
  - Jugular vein thrombosis [Recovered/Resolved]

NARRATIVE: CASE EVENT DATE: 20210329
